FAERS Safety Report 6055184-9 (Version None)
Quarter: 2009Q1

REPORT INFORMATION
  Report Type: 
  Country: None (occurrence: None)
  Receive Date: 20090128
  Receipt Date: 20090123
  Transmission Date: 20090719
  Serious: Yes (Hospitalization)
  Sender: FDA-Public Use
  Company Number: US-JNJFOC-20090106173

PATIENT
  Sex: Female
  Weight: 63.5 kg

DRUGS (5)
  1. DURAGESIC-100 [Suspect]
     Indication: BACK PAIN
     Dosage: 75 UG/HR + 75 UG/HR
     Route: 062
  2. METHADONE HCL [Concomitant]
     Indication: PAIN
     Dosage: DOSE: 10 MG THREE TIMES A DAY
     Route: 048
  3. COUMADIN [Concomitant]
     Dosage: 3 MG/1 EVERY TUESDAY, THURSDAY AND SATURDAY
     Route: 048
  4. COUMADIN [Concomitant]
     Indication: BLOOD DISORDER
     Dosage: 4 MG/1 EVERY SUNDAY/MONDAY AND FRIDAY
     Route: 048
  5. STEROIDS [Concomitant]
     Route: 048

REACTIONS (2)
  - HOSPITALISATION [None]
  - HYPERHIDROSIS [None]
